FAERS Safety Report 7372029-5 (Version None)
Quarter: 2011Q1

REPORT INFORMATION
  Report Type: 
  Country: None (occurrence: None)
  Receive Date: 20110324
  Receipt Date: 20110315
  Transmission Date: 20110831
  Serious: Yes (Other)
  Sender: FDA-Public Use
  Company Number: PHHY2010BR69502

PATIENT
  Sex: Female

DRUGS (1)
  1. FORASEQ [Suspect]

REACTIONS (7)
  - FATIGUE [None]
  - MALAISE [None]
  - CEREBROVASCULAR ACCIDENT [None]
  - RESPIRATORY DISORDER [None]
  - BLOOD PRESSURE ABNORMAL [None]
  - BLINDNESS UNILATERAL [None]
  - CHEST PAIN [None]
